FAERS Safety Report 8957484 (Version 2)
Quarter: 2013Q1

REPORT INFORMATION
  Report Type: Spontaneous
  Country: US (occurrence: US)
  Receive Date: 20121210
  Receipt Date: 20130212
  Transmission Date: 20140127
  Serious: Yes (Other)
  Sender: FDA-Public Use
  Company Number: US-ASTELLAS-2012US011584

PATIENT
  Age: 60 None
  Sex: Male

DRUGS (3)
  1. XTANDI [Suspect]
     Indication: PROSTATE CANCER
     Dosage: 160 MG, UID/QD
     Route: 048
     Dates: start: 20121026
  2. XTANDI [Suspect]
     Dosage: UNK MG, UID/QD
     Route: 048
  3. LUPRON [Concomitant]
     Indication: PROSTATE CANCER
     Dosage: UNK
     Route: 065

REACTIONS (5)
  - Neuropathy peripheral [Unknown]
  - Chills [Recovered/Resolved]
  - Abdominal distension [Unknown]
  - Hot flush [Unknown]
  - Back pain [Unknown]
